FAERS Safety Report 8333512-9 (Version None)
Quarter: 2012Q2

REPORT INFORMATION
  Report Type: 
  Country: None (occurrence: None)
  Receive Date: 20120503
  Receipt Date: 20101109
  Transmission Date: 20120825
  Serious: No
  Sender: FDA-Public Use
  Company Number: US-TEVA-2010005878

PATIENT
  Sex: Female
  Weight: 49.032 kg

DRUGS (6)
  1. KLONOPIN [Concomitant]
     Indication: ANXIETY
     Dosage: 2 MILLIGRAM;
     Dates: start: 20040101
  2. DETROL [Concomitant]
     Indication: HYPERTONIC BLADDER
     Dosage: 4 MILLIGRAM;
     Dates: start: 20001101
  3. ZOLOFT [Concomitant]
     Indication: DEPRESSION
     Dates: start: 20101101
  4. NUVIGIL [Suspect]
     Dosage: 250 MILLIGRAM;
     Route: 048
     Dates: start: 20101108
  5. NUVIGIL [Suspect]
     Indication: REVERSAL OF SEDATION
     Dosage: 150 MILLIGRAM;
     Route: 048
  6. SEROQUEL [Concomitant]
     Indication: INSOMNIA
     Dosage: 50 MILLIGRAM;
     Dates: start: 20101101

REACTIONS (1)
  - DRUG INEFFECTIVE FOR UNAPPROVED INDICATION [None]
